FAERS Safety Report 11286614 (Version 1)
Quarter: 2015Q3

REPORT INFORMATION
  Report Type: Spontaneous
  Country: US (occurrence: US)
  Receive Date: 20150721
  Receipt Date: 20150721
  Transmission Date: 20151125
  Serious: No
  Sender: FDA-Public Use
  Company Number: US-UNITED THERAPEUTICS-UNT-2015-002912

PATIENT
  Sex: Female
  Weight: 123.36 kg

DRUGS (1)
  1. TYVASO [Suspect]
     Active Substance: TREPROSTINIL
     Indication: PULMONARY ARTERIAL HYPERTENSION
     Dosage: 18-72 MICROGRAMS, QID
     Dates: start: 20140311

REACTIONS (6)
  - Seasonal allergy [Unknown]
  - Dyspnoea [Unknown]
  - Blood pressure decreased [Unknown]
  - Insomnia [Unknown]
  - Oedema peripheral [Unknown]
  - Pain [Unknown]
